FAERS Safety Report 6462056-4 (Version None)
Quarter: 2009Q4

REPORT INFORMATION
  Report Type: 
  Country: None (occurrence: None)
  Receive Date: 20091130
  Receipt Date: 20091116
  Transmission Date: 20100525
  Serious: Yes (Death)
  Sender: FDA-Public Use
  Company Number: PHHY2009AO51698

PATIENT
  Age: 19 Month
  Sex: Male

DRUGS (4)
  1. COARTEM [Suspect]
     Dosage: UNK
     Dates: start: 20090918, end: 20090921
  2. AMOXICILLIN [Suspect]
     Dosage: UNK
     Dates: start: 20090918, end: 20090921
  3. PARACETAMOL [Suspect]
     Dosage: UNK
     Dates: start: 20090918, end: 20090921
  4. PHENOBARBITAL [Concomitant]

REACTIONS (2)
  - SKIN LESION [None]
  - STEVENS-JOHNSON SYNDROME [None]
